FAERS Safety Report 6756938-3 (Version None)
Quarter: 2010Q2

REPORT INFORMATION
  Report Type: 
  Country: None (occurrence: None)
  Receive Date: 20100604
  Receipt Date: 20100524
  Transmission Date: 20101027
  Serious: Yes (Hospitalization)
  Sender: FDA-Public Use
  Company Number: JP-WATSON-2010-07129

PATIENT
  Age: 77 Year
  Sex: Female

DRUGS (2)
  1. CIMETIDINE [Suspect]
     Indication: DRUG USE FOR UNKNOWN INDICATION
     Dosage: UNK
  2. CILOSTAZOL [Suspect]
     Indication: CEREBRAL INFARCTION
     Dosage: UNK

REACTIONS (3)
  - HAEMATOMA [None]
  - INHIBITORY DRUG INTERACTION [None]
  - SMALL INTESTINAL HAEMORRHAGE [None]
